FAERS Safety Report 25444373 (Version 3)
Quarter: 2025Q4

REPORT INFORMATION
  Report Type: Spontaneous
  Country: US (occurrence: None)
  Receive Date: 20250617
  Receipt Date: 20251215
  Transmission Date: 20260117
  Serious: No
  Sender: UCB
  Company Number: US-UCBSA-2025025417

PATIENT
  Age: 40 Year
  Weight: 74 kg

DRUGS (2)
  1. BIMZELX [Suspect]
     Active Substance: BIMEKIZUMAB-BKZX
     Indication: Hidradenitis
     Dosage: 320 MILLIGRAM, EV 2 WEEKS(QOW)
  2. BIMZELX [Suspect]
     Active Substance: BIMEKIZUMAB-BKZX
     Indication: Psoriasis

REACTIONS (15)
  - Hidradenitis [Recovered/Resolved]
  - Condition aggravated [Recovered/Resolved]
  - Fatigue [Unknown]
  - Headache [Unknown]
  - Nausea [Recovered/Resolved]
  - Abdominal pain upper [Recovered/Resolved]
  - Myalgia [Unknown]
  - Back pain [Unknown]
  - Influenza [Recovered/Resolved]
  - Adverse drug reaction [Recovered/Resolved]
  - Insomnia [Unknown]
  - Hypersensitivity [Unknown]
  - Urticaria [Recovered/Resolved]
  - Jaundice [Recovered/Resolved]
  - Weight decreased [Unknown]
